FAERS Safety Report 4398861-8 (Version None)
Quarter: 2004Q2

REPORT INFORMATION
  Report Type: 
  Country: None (occurrence: None)
  Receive Date: 20040621
  Receipt Date: 20040213
  Transmission Date: 20050107
  Serious: Yes (Death, Other)
  Sender: FDA-Public Use
  Company Number: USA-2003-0007241

PATIENT
  Age: 33 Year
  Sex: Male
  Weight: 82.1 kg

DRUGS (6)
  1. OXYCONTIN [Suspect]
  2. HYDROCODONE BITARTRATE [Suspect]
  3. DIAZEPAM [Suspect]
  4. MESCALINE (MESCALINE) [Suspect]
  5. CAFFEINE (CAFFEINE) [Suspect]
  6. NICOTINE [Suspect]

REACTIONS (3)
  - ACCIDENTAL OVERDOSE [None]
  - DRUG ABUSER [None]
  - MULTIPLE DRUG OVERDOSE [None]
